FAERS Safety Report 9608384 (Version 1)
Quarter: 2013Q4

REPORT INFORMATION
  Report Type: Report from Study
  Country: KR (occurrence: KR)
  Receive Date: 20131009
  Receipt Date: 20131009
  Transmission Date: 20140711
  Serious: Yes (Hospitalization, Other)
  Sender: FDA-Public Use
  Company Number: PHHO2013KR012514

PATIENT
  Age: 63 Year
  Sex: Female
  Weight: 57 kg

DRUGS (3)
  1. EVEROLIMUS [Suspect]
     Indication: PANCREATIC NEUROENDOCRINE TUMOUR
     Dosage: UNK
     Dates: start: 20130627, end: 20130829
  2. CIPROFLOXACIN [Concomitant]
     Indication: PROPHYLAXIS
     Dosage: 250 MG, BID
     Route: 048
     Dates: start: 20130627, end: 20130817
  3. ULTRACET [Concomitant]
     Indication: PROPHYLAXIS
     Dosage: 2 MG, QD
     Dates: start: 20130628

REACTIONS (4)
  - Pneumonia bacterial [Recovered/Resolved]
  - Pyrexia [Unknown]
  - Flank pain [Unknown]
  - C-reactive protein increased [Unknown]
